FAERS Safety Report 10398632 (Version 2)
Quarter: 2014Q3

REPORT INFORMATION
  Report Type: Spontaneous
  Country: US (occurrence: None)
  Receive Date: 20130815
  Receipt Date: 20140815
  Transmission Date: 20150326
  Serious: Yes (Other)
  Sender: FDA-Public Use
  Company Number: ADR-2012-01222

PATIENT
  Age: 68 Year
  Sex: Male

DRUGS (1)
  1. LIORESAL [Suspect]
     Active Substance: BACLOFEN
     Indication: MUSCLE SPASTICITY

REACTIONS (6)
  - Convulsion [None]
  - Insomnia [None]
  - Muscle spasticity [None]
  - Discomfort [None]
  - Hallucination [None]
  - Loss of consciousness [None]

NARRATIVE: CASE EVENT DATE: 20120512
